FAERS Safety Report 5423136-5 (Version None)
Quarter: 2007Q3

REPORT INFORMATION
  Report Type: 
  Country: None (occurrence: None)
  Receive Date: 20070821
  Receipt Date: 20070809
  Transmission Date: 20080115
  Serious: Yes (Hospitalization)
  Sender: FDA-Public Use
  Company Number: 2007TG0087

PATIENT
  Age: 65 Year
  Sex: Female

DRUGS (3)
  1. FENOFIBRATE [Suspect]
     Indication: DYSLIPIDAEMIA
     Dosage: PO
     Route: 048
  2. WARFARIN SODIUM [Suspect]
     Indication: ATRIAL FIBRILLATION
     Dosage: PO
     Route: 048
  3. WARFARIN SODIUM [Suspect]
     Indication: MITRAL VALVE REPAIR
     Dosage: PO
     Route: 048

REACTIONS (8)
  - ATRIAL FIBRILLATION [None]
  - CARDIAC DISORDER [None]
  - COAGULOPATHY [None]
  - DRUG INTERACTION [None]
  - GASTROINTESTINAL HAEMORRHAGE [None]
  - HAEMARTHROSIS [None]
  - INTERNATIONAL NORMALISED RATIO INCREASED [None]
  - NORMOCHROMIC NORMOCYTIC ANAEMIA [None]
